FAERS Safety Report 16363605 (Version 3)
Quarter: 2019Q3

REPORT INFORMATION
  Report Type: Other
  Country: US (occurrence: US)
  Receive Date: 20190528
  Receipt Date: 20190924
  Transmission Date: 20191004
  Serious: Yes (Hospitalization, Other)
  Sender: FDA-Public Use
  Company Number: US-AMAG PHARMACEUTICALS, INC.-AMAG201902326

PATIENT
  Age: 30 Year
  Sex: Female

DRUGS (1)
  1. MAKENA [Suspect]
     Active Substance: HYDROXYPROGESTERONE CAPROATE
     Indication: PREMATURE DELIVERY
     Route: 058
     Dates: start: 20190123, end: 20190327

REACTIONS (3)
  - Premature delivery [Recovered/Resolved]
  - Peritoneal haemorrhage [Recovered/Resolved]
  - Placenta accreta [Recovered/Resolved]

NARRATIVE: CASE EVENT DATE: 20190326
